FAERS Safety Report 6811099-7 (Version None)
Quarter: 2010Q2

REPORT INFORMATION
  Report Type: 
  Country: None (occurrence: None)
  Receive Date: 20100630
  Receipt Date: 20090331
  Transmission Date: 20101027
  Serious: No
  Sender: FDA-Public Use
  Company Number: US-PFIZER INC-2009192567

PATIENT

DRUGS (1)
  1. NICOTROL [Suspect]
     Route: 055

REACTIONS (2)
  - DYSARTHRIA [None]
  - NERVOUSNESS [None]
